FAERS Safety Report 5619305-1 (Version None)
Quarter: 2008Q1

REPORT INFORMATION
  Report Type: 
  Country: None (occurrence: None)
  Receive Date: 20080206
  Receipt Date: 20080121
  Transmission Date: 20080703
  Serious: Yes (Hospitalization)
  Sender: FDA-Public Use
  Company Number: M-08-0070

PATIENT
  Age: 59 Year
  Sex: Male

DRUGS (13)
  1. KLOR-CON M20 [Suspect]
     Indication: DIURETIC THERAPY
     Dosage: 20 MEQ, BID, PO
     Route: 048
     Dates: start: 20080101
  2. KLOR-CON M20 [Suspect]
     Indication: DIURETIC THERAPY
     Dosage: 40 MEQ, QD, PO
     Route: 048
     Dates: start: 20070101, end: 20080101
  3. BETAPACE [Concomitant]
  4. VASOTEC [Concomitant]
  5. PLAVIX [Concomitant]
  6. LASIX [Concomitant]
  7. LIPITOR [Concomitant]
  8. NITROGLYCERIN [Concomitant]
  9. ZETIA [Concomitant]
  10. NEXIUM [Concomitant]
  11. ATIVAN [Concomitant]
  12. ASPIRIN [Concomitant]
  13. CENTRUM [Concomitant]

REACTIONS (15)
  - ABDOMINAL DISTENSION [None]
  - ABDOMINAL PAIN UPPER [None]
  - BACTERIAL INFECTION [None]
  - BLOOD MAGNESIUM DECREASED [None]
  - BLOOD POTASSIUM INCREASED [None]
  - CARDIAC ENZYMES INCREASED [None]
  - CHEST PAIN [None]
  - DEHYDRATION [None]
  - DIARRHOEA [None]
  - DYSPNOEA [None]
  - GASTROINTESTINAL DISORDER [None]
  - MYOCARDIAL INFARCTION [None]
  - NAUSEA [None]
  - VOMITING [None]
  - WEIGHT DECREASED [None]
